FAERS Safety Report 8608645-X (Version None)
Quarter: 2012Q3

REPORT INFORMATION
  Report Type: 
  Country: None (occurrence: None)
  Receive Date: 20120821
  Receipt Date: 20120808
  Transmission Date: 20120928
  Serious: No
  Sender: FDA-Public Use
  Company Number: US-ASTRAZENECA-2012SE55351

PATIENT
  Age: 72 Year
  Sex: Male
  Weight: 68 kg

DRUGS (19)
  1. ATENOLOL [Concomitant]
     Indication: HYPERTENSION
  2. COLCRIS [Concomitant]
     Indication: GOUT
  3. FISH OIL WITH OMEGA-3 [Concomitant]
  4. NEXIUM [Suspect]
     Indication: GASTROOESOPHAGEAL REFLUX DISEASE
     Route: 048
     Dates: start: 20040101
  5. NORVASC [Concomitant]
     Indication: HYPERTENSION
  6. D3 [Concomitant]
  7. Q10 [Concomitant]
  8. GARLIC [Concomitant]
     Indication: CARDIAC DISORDER
  9. ASPIRIN [Concomitant]
  10. FHENOFIBRATE [Concomitant]
     Indication: GASTROOESOPHAGEAL REFLUX DISEASE
  11. PLETAL [Concomitant]
     Indication: POOR PERIPHERAL CIRCULATION
  12. ALLOPURINOL [Concomitant]
     Indication: GOUT
  13. POTASSIUM CHLORIDE [Concomitant]
  14. LASIX [Concomitant]
     Indication: FLUID RETENTION
  15. FERROUS SULFATE TAB [Concomitant]
     Indication: BLOOD IRON
  16. PLAVIX [Concomitant]
  17. DIOVAN [Concomitant]
  18. CINNAMON [Concomitant]
     Indication: CARDIAC DISORDER
  19. GLIPIZIDE [Concomitant]
     Indication: DIABETES MELLITUS

REACTIONS (3)
  - DRUG DOSE OMISSION [None]
  - DISEASE RECURRENCE [None]
  - DYSPEPSIA [None]
